FAERS Safety Report 25223940 (Version 2)
Quarter: 2025Q2

REPORT INFORMATION
  Report Type: Spontaneous
  Country: US (occurrence: US)
  Receive Date: 20250422
  Receipt Date: 20250625
  Transmission Date: 20250716
  Serious: No
  Sender: ALEXION PHARMACEUTICALS
  Company Number: US-AstraZeneca-CH-00851325AP

PATIENT

DRUGS (2)
  1. BREZTRI [Suspect]
     Active Substance: BUDESONIDE\FORMOTEROL\GLYCOPYRROLATE
     Route: 065
  2. ALBUTEROL [Concomitant]
     Active Substance: ALBUTEROL
     Route: 065

REACTIONS (8)
  - Product dose omission issue [Unknown]
  - Overdose [Unknown]
  - Incorrect dose administered [Unknown]
  - Chronic obstructive pulmonary disease [Unknown]
  - Product use issue [Unknown]
  - Drug delivery system issue [Unknown]
  - Device use issue [Unknown]
  - Intentional device misuse [Unknown]
